FAERS Safety Report 7101745-5 (Version None)
Quarter: 2010Q4

REPORT INFORMATION
  Report Type: 
  Country: None (occurrence: None)
  Receive Date: 20101115
  Receipt Date: 20100915
  Transmission Date: 20110411
  Serious: Yes (Other)
  Sender: FDA-Public Use
  Company Number: US-SANOFI-AVENTIS-2010SA046581

PATIENT
  Age: 64 Year
  Sex: Female
  Weight: 64.86 kg

DRUGS (6)
  1. ZOLPIDEM TARTRATE [Suspect]
     Indication: INSOMNIA
     Route: 048
     Dates: start: 20100101, end: 20100801
  2. ZOLPIDEM TARTRATE [Suspect]
     Route: 048
     Dates: start: 20100301, end: 20100101
  3. LISINOPRIL AND HYDROCHLOROTHIAZIDE [Concomitant]
     Dates: start: 19950101
  4. ACTONEL [Concomitant]
     Indication: OSTEOPOROSIS
     Dosage: (SAMPLES ONLY- CAN'T AFFORD IT)
     Dates: start: 19950101
  5. NEXIUM [Concomitant]
     Dosage: (WHEN SHE CAN AFFORD IT)
     Dates: start: 20000101
  6. WELLBUTRIN SR [Concomitant]
     Indication: DEPRESSION
     Dates: start: 19950101, end: 20100801

REACTIONS (5)
  - AGITATION [None]
  - AMNESIA [None]
  - INCREASED APPETITE [None]
  - INSOMNIA [None]
  - WEIGHT INCREASED [None]
